FAERS Safety Report 24253717 (Version 4)
Quarter: 2025Q3

REPORT INFORMATION
  Report Type: Spontaneous
  Country: JP (occurrence: JP)
  Receive Date: 20240827
  Receipt Date: 20250802
  Transmission Date: 20251020
  Serious: Yes (Hospitalization, Other)
  Sender: ALEXION PHARMACEUTICALS
  Company Number: 2024A154106

PATIENT
  Age: 77 Year
  Sex: Male
  Weight: 63 kg

DRUGS (20)
  1. IMFINZI [Suspect]
     Active Substance: DURVALUMAB
     Dates: start: 20230529, end: 20240520
  2. GEMCITABINE HYDROCHLORIDE [Suspect]
     Active Substance: GEMCITABINE HYDROCHLORIDE
     Indication: Bile duct cancer
  3. GEMCITABINE HYDROCHLORIDE [Suspect]
     Active Substance: GEMCITABINE HYDROCHLORIDE
     Indication: Bile duct cancer
  4. GEMCITABINE HYDROCHLORIDE [Suspect]
     Active Substance: GEMCITABINE HYDROCHLORIDE
     Dates: start: 20230529, end: 20230529
  5. GEMCITABINE HYDROCHLORIDE [Suspect]
     Active Substance: GEMCITABINE HYDROCHLORIDE
     Dates: start: 20230626, end: 20231225
  6. GEMCITABINE HYDROCHLORIDE [Suspect]
     Active Substance: GEMCITABINE HYDROCHLORIDE
     Dates: start: 20240328, end: 20240507
  7. GEMCITABINE HYDROCHLORIDE [Suspect]
     Active Substance: GEMCITABINE HYDROCHLORIDE
     Dates: start: 20240520, end: 20240603
  8. CISPLATIN [Suspect]
     Active Substance: CISPLATIN
     Indication: Bile duct cancer
  9. CISPLATIN [Suspect]
     Active Substance: CISPLATIN
  10. CISPLATIN [Suspect]
     Active Substance: CISPLATIN
  11. CISPLATIN [Suspect]
     Active Substance: CISPLATIN
  12. CISPLATIN [Suspect]
     Active Substance: CISPLATIN
  13. VONOPRAZAN FUMARATE [Concomitant]
     Active Substance: VONOPRAZAN FUMARATE
     Indication: Duodenal ulcer
     Dosage: 10 MILLIGRAM, QD
  14. VONOPRAZAN FUMARATE [Concomitant]
     Active Substance: VONOPRAZAN FUMARATE
  15. VONOPRAZAN FUMARATE [Concomitant]
     Active Substance: VONOPRAZAN FUMARATE
  16. VONOPRAZAN FUMARATE [Concomitant]
     Active Substance: VONOPRAZAN FUMARATE
     Dosage: 10 MILLIGRAM
  17. MAGNESIUM OXIDE [Concomitant]
     Active Substance: MAGNESIUM OXIDE
     Indication: Duodenal ulcer
     Dosage: 330 MILLIGRAM, TID
  18. MAGNESIUM OXIDE [Concomitant]
     Active Substance: MAGNESIUM OXIDE
  19. MAGNESIUM OXIDE [Concomitant]
     Active Substance: MAGNESIUM OXIDE
  20. MAGNESIUM OXIDE [Concomitant]
     Active Substance: MAGNESIUM OXIDE

REACTIONS (1)
  - Factor V inhibition [Not Recovered/Not Resolved]

NARRATIVE: CASE EVENT DATE: 20240617
